FAERS Safety Report 5618259-1 (Version None)
Quarter: 2008Q1

REPORT INFORMATION
  Report Type: 
  Country: None (occurrence: None)
  Receive Date: 20080207
  Receipt Date: 20080128
  Transmission Date: 20080703
  Serious: Yes (Other)
  Sender: FDA-Public Use
  Company Number: PHBS2008GR01438

PATIENT
  Age: 28 Year
  Sex: Female

DRUGS (3)
  1. GLEEVEC [Suspect]
     Indication: ACUTE MYELOID LEUKAEMIA
     Dosage: 800 MG/D
     Route: 048
     Dates: start: 20070101
  2. GLEEVEC [Suspect]
     Dosage: 600 MG/D
     Route: 048
  3. ANTINEOPLASTIC AGENTS [Concomitant]
     Route: 065

REACTIONS (2)
  - HYPONATRAEMIA [None]
  - INAPPROPRIATE ANTIDIURETIC HORMONE SECRETION [None]
